FAERS Safety Report 4485065-3 (Version None)
Quarter: 2004Q4

REPORT INFORMATION
  Report Type: 
  Country: None (occurrence: None)
  Receive Date: 20041022
  Receipt Date: 20041022
  Transmission Date: 20050328
  Serious: Yes (Other)
  Sender: FDA-Public Use
  Company Number: None

PATIENT
  Age: 63 Year
  Sex: Male
  Weight: 96.6 kg

DRUGS (13)
  1. DEPAKOTE [Suspect]
  2. TOPIRMATE [Concomitant]
  3. PAROXETINE HCL [Concomitant]
  4. POTASSIUM CHLORIDE [Concomitant]
  5. HYDROCHLOROTHIAZIDE/LISINOPRIL [Concomitant]
  6. METOPROLOL SUCCINATE [Concomitant]
  7. DIVALPROEX EC [Concomitant]
  8. DOCUSATE SODIUM [Concomitant]
  9. SIMVASTATIN [Concomitant]
  10. METFORMIN HCL [Concomitant]
  11. MULTI-VITAMIN [Concomitant]
  12. ASPIRIN [Concomitant]
  13. GLYBURIDE [Concomitant]

REACTIONS (1)
  - THROMBOCYTOPENIA [None]
